FAERS Safety Report 7407660-1 (Version None)
Quarter: 2011Q2

REPORT INFORMATION
  Report Type: 
  Country: None (occurrence: None)
  Receive Date: 20110405
  Receipt Date: 20110322
  Transmission Date: 20111010
  Serious: Yes (Hospitalization, Other)
  Sender: FDA-Public Use
  Company Number: JHP201000234

PATIENT
  Age: 57 Year
  Sex: Male

DRUGS (14)
  1. SIVELESTAT (SIVELESTAT) [Concomitant]
  2. CEFOTIAM (CEFOTIAM) [Concomitant]
  3. LINEZOLID [Concomitant]
  4. GABEXATE (GABEXATE) [Concomitant]
  5. PIPERACILLIN W/TAZOBACTAM (PIPERACILLIN, TAZOBACTAM) [Concomitant]
  6. DANTRIUM [Suspect]
     Dosage: 75 MG, DAILY, ORAL
     Route: 048
  7. FLUID REPLACEMENT [Concomitant]
  8. MIDAZOLAM HYDROCHLORIDE [Concomitant]
  9. MINOCYCLINE (MINOCYCLINE HYDROCHLORIDE) [Concomitant]
  10. DOPAMINE HCL [Concomitant]
  11. LIDOCAINE (LIDOCAINE HYDROCHLORIDE) [Concomitant]
  12. CLINDAMYCIN (CLINDAMYCIN PHOSPHATE) [Concomitant]
  13. MEROPENEM [Concomitant]
  14. LEVOFLOXACIN [Concomitant]

REACTIONS (12)
  - CEREBRAL INFARCTION [None]
  - VENTRICULAR EXTRASYSTOLES [None]
  - EJECTION FRACTION DECREASED [None]
  - NEUROLEPTIC MALIGNANT SYNDROME [None]
  - ANTIBIOTIC RESISTANT STAPHYLOCOCCUS TEST POSITIVE [None]
  - PNEUMONIA [None]
  - VENTRICULAR HYPOKINESIA [None]
  - SPUTUM CULTURE POSITIVE [None]
  - PYELONEPHRITIS ACUTE [None]
  - HYPONATRAEMIA [None]
  - RESPIRATORY DISORDER [None]
  - LIVER DISORDER [None]
